FAERS Safety Report 20653424 (Version 2)
Quarter: 2022Q2

REPORT INFORMATION
  Report Type: Spontaneous
  Country: SG (occurrence: SG)
  Receive Date: 20220330
  Receipt Date: 20220411
  Transmission Date: 20220720
  Serious: Yes (Other)
  Sender: FDA-Public Use
  Company Number: SG-IGSA-BIG0018262

PATIENT
  Age: 29 Year
  Sex: Female
  Weight: 70 kg

DRUGS (2)
  1. HYPERRHO S/D [Suspect]
     Active Substance: HUMAN RHO(D) IMMUNE GLOBULIN
     Indication: Rhesus haemolytic disease of newborn
     Dosage: 1500 INTERNATIONAL UNIT, SINGLE
     Route: 030
     Dates: start: 20220324, end: 20220324
  2. VITAMINS NOS [Concomitant]
     Active Substance: VITAMINS

REACTIONS (3)
  - Abortion spontaneous [Unknown]
  - Foetal hypokinesia [Unknown]
  - Foetal cardiac arrest [Unknown]

NARRATIVE: CASE EVENT DATE: 20220324
